FAERS Safety Report 7993356-4 (Version None)
Quarter: 2011Q4

REPORT INFORMATION
  Report Type: 
  Country: None (occurrence: None)
  Receive Date: 20111219
  Receipt Date: 20110922
  Transmission Date: 20120403
  Serious: No
  Sender: FDA-Public Use
  Company Number: US-ASTRAZENECA-2011SE56948

PATIENT
  Age: 69 Year
  Sex: Male
  Weight: 86.2 kg

DRUGS (11)
  1. CRESTOR [Suspect]
     Indication: BLOOD CHOLESTEROL ABNORMAL
     Route: 048
     Dates: start: 20110902, end: 20110909
  2. HYDROCORTISONE [Concomitant]
     Indication: ARTHRALGIA
  3. TRICOR [Concomitant]
     Indication: BLOOD CHOLESTEROL ABNORMAL
  4. ASPIRIN [Concomitant]
     Indication: ANTICOAGULANT THERAPY
  5. MEDFORM [Concomitant]
     Indication: BLOOD GLUCOSE ABNORMAL
  6. SYNAPIL [Concomitant]
     Indication: BLOOD PRESSURE ABNORMAL
  7. GALVATIN [Concomitant]
     Indication: ARTHRITIS
  8. LOVACL [Concomitant]
     Indication: BLOOD CHOLESTEROL ABNORMAL
  9. LOSARTAN POTASSIUM [Concomitant]
     Indication: BLOOD PRESSURE ABNORMAL
  10. GALVATIN [Concomitant]
     Indication: PAIN
  11. NASPAN [Concomitant]
     Indication: BLOOD CHOLESTEROL ABNORMAL

REACTIONS (7)
  - NAUSEA [None]
  - INCORRECT DOSE ADMINISTERED [None]
  - ABDOMINAL TENDERNESS [None]
  - WRONG TECHNIQUE IN DRUG USAGE PROCESS [None]
  - CONSTIPATION [None]
  - DYSURIA [None]
  - ABDOMINAL PAIN [None]
